FAERS Safety Report 4269208-2 (Version None)
Quarter: 2004Q1

REPORT INFORMATION
  Report Type: 
  Country: None (occurrence: None)
  Receive Date: 20040113
  Receipt Date: 20040105
  Transmission Date: 20041129
  Serious: Yes (Hospitalization)
  Sender: FDA-Public Use
  Company Number: FR-GLAXOSMITHKLINE-B0319103A

PATIENT
  Age: 44 Year
  Sex: Female
  Weight: 79.9 kg

DRUGS (4)
  1. CLAMOXYL [Suspect]
     Indication: PHARYNGITIS
     Dosage: 1000MG TWICE PER DAY
     Route: 048
     Dates: start: 20030809, end: 20030813
  2. LOCABIOTAL [Suspect]
     Indication: PHARYNGITIS
     Route: 048
     Dates: start: 20030809, end: 20030813
  3. LYSOPAINE [Suspect]
     Indication: PHARYNGITIS
     Route: 048
     Dates: start: 20030809, end: 20030813
  4. DOLIPRANE [Suspect]
     Indication: PHARYNGITIS
     Dosage: 1000MG THREE TIMES PER DAY
     Route: 048
     Dates: start: 20030809, end: 20030813

REACTIONS (1)
  - ANGIONEUROTIC OEDEMA [None]
